FAERS Safety Report 5216700-X (Version None)
Quarter: 2007Q1

REPORT INFORMATION
  Report Type: 
  Country: None (occurrence: None)
  Receive Date: 20061130
  Receipt Date: 20060530
  Transmission Date: 20070707
  Serious: Yes (Other)
  Sender: FDA-Public Use
  Company Number: US200603004331

PATIENT
  Age: 43 Year
  Sex: Female
  Weight: 106.6 kg

DRUGS (3)
  1. OLANZAPINE [Suspect]
     Dates: start: 19970624, end: 20051001
  2. ABILIFY [Concomitant]
  3. METFORMIN HCL [Concomitant]

REACTIONS (8)
  - BLOOD CHOLESTEROL INCREASED [None]
  - BLOOD TRIGLYCERIDES INCREASED [None]
  - DIABETES MELLITUS [None]
  - LIPIDS INCREASED [None]
  - METABOLIC DISORDER [None]
  - OBESITY [None]
  - PANCREATITIS [None]
  - WEIGHT INCREASED [None]
